FAERS Safety Report 9995893 (Version 1)
Quarter: 2014Q1

REPORT INFORMATION
  Report Type: Spontaneous
  Country: US (occurrence: US)
  Receive Date: 20140311
  Receipt Date: 20140311
  Transmission Date: 20141002
  Serious: No
  Sender: FDA-Public Use
  Company Number: US-ABBVIE-13P-163-1063678-00

PATIENT
  Age: 25 Year
  Sex: Male

DRUGS (1)
  1. ULTANE [Suspect]
     Indication: OCCUPATIONAL EXPOSURE TO PRODUCT
     Dates: start: 20130314, end: 20130314

REACTIONS (1)
  - Accidental exposure to product [Recovered/Resolved]
